FAERS Safety Report 10154107 (Version 1)
Quarter: 2014Q2

REPORT INFORMATION
  Report Type: Spontaneous
  Country: JP (occurrence: None)
  Receive Date: 20140502
  Receipt Date: 20140502
  Transmission Date: 20141212
  Serious: Yes (Hospitalization, Other)
  Sender: FDA-Public Use
  Company Number: VAL_03100_2014

PATIENT
  Age: 64 Year
  Sex: Male
  Weight: 82 kg

DRUGS (2)
  1. BROMOCRIPTINE [Suspect]
     Indication: PRODUCT USED FOR UNKNOWN INDICATION
  2. OCTREOTIDE [Suspect]
     Indication: ACROMEGALY
     Route: 058

REACTIONS (9)
  - Pituitary haemorrhage [None]
  - Glycosylated haemoglobin increased [None]
  - Diabetes mellitus inadequate control [None]
  - Acromegaly [None]
  - Colon cancer [None]
  - Urinary tract infection [None]
  - Adrenal insufficiency [None]
  - Drug ineffective [None]
  - Pituitary tumour [None]
